FAERS Safety Report 4365892-3 (Version None)
Quarter: 2004Q2

REPORT INFORMATION
  Report Type: 
  Country: None (occurrence: None)
  Receive Date: 20040520
  Receipt Date: 20040507
  Transmission Date: 20050107
  Serious: Yes (Hospitalization)
  Sender: FDA-Public Use
  Company Number: CZ-JNJFOC-20040500369

PATIENT
  Age: 64 Year
  Sex: Female

DRUGS (8)
  1. REMICADE [Suspect]
     Indication: RHEUMATOID ARTHRITIS
     Dosage: 3 MG/KG, INTRAVENOUS
     Route: 042
     Dates: start: 20020724
  2. METOPROLOL TARTRATE [Concomitant]
  3. SORTIS (ATORVASTATIN CALCIUM) [Concomitant]
  4. PREDNISONE [Concomitant]
  5. METHOTREXATE [Concomitant]
  6. FOSAMAX [Concomitant]
  7. MYDOCALM (TOLPERISONE HYDROCHLORIDE) [Concomitant]
  8. ACTRAPID (INSULIN HUMAN) [Concomitant]

REACTIONS (4)
  - ACUTE CORONARY SYNDROME [None]
  - AORTIC STENOSIS [None]
  - CARDIAC TAMPONADE [None]
  - MYOCARDIAL INFARCTION [None]
